FAERS Safety Report 4403167-4 (Version None)
Quarter: 2004Q3

REPORT INFORMATION
  Report Type: 
  Country: None (occurrence: None)
  Receive Date: 20040721
  Receipt Date: 20040524
  Transmission Date: 20050211
  Serious: Yes (Other)
  Sender: FDA-Public Use
  Company Number: US-GLAXOSMITHKLINE-A0512352A

PATIENT
  Age: 32 Year
  Sex: Female
  Weight: 75 kg

DRUGS (16)
  1. IMITREX [Suspect]
     Indication: MIGRAINE
     Route: 048
  2. DARVOCET [Concomitant]
  3. ALEVE [Concomitant]
  4. COMPAZINE [Concomitant]
  5. STADOL [Concomitant]
  6. INDERAL [Concomitant]
  7. FIORICET [Concomitant]
  8. AMERGE [Concomitant]
     Route: 048
  9. DESYREL [Concomitant]
  10. ULTRAM [Concomitant]
  11. UNSPECIFIED MEDICATION [Concomitant]
  12. CELEBREX [Concomitant]
  13. SKELAXIN [Concomitant]
  14. ATIVAN [Concomitant]
     Dosage: .5MG TWICE PER DAY
     Route: 048
  15. ANTIVERT [Concomitant]
     Dosage: 25MG TWICE PER DAY
     Route: 048
  16. BACTRIM DS [Concomitant]

REACTIONS (4)
  - AMNESIA [None]
  - CEREBROVASCULAR ACCIDENT [None]
  - DIFFICULTY IN WALKING [None]
  - HYPOAESTHESIA [None]
